FAERS Safety Report 16053859 (Version 1)
Quarter: 2019Q1

REPORT INFORMATION
  Report Type: Report from Study
  Country: FR (occurrence: FR)
  Receive Date: 20190308
  Receipt Date: 20190308
  Transmission Date: 20190418
  Serious: Yes (Other)
  Sender: FDA-Public Use
  Company Number: PHHY2019FR053148

PATIENT
  Sex: Female

DRUGS (1)
  1. COSENTYX [Suspect]
     Active Substance: SECUKINUMAB
     Indication: PSORIASIS
     Dosage: UNK, Q3MO
     Route: 065
     Dates: start: 2014

REACTIONS (5)
  - Erythema multiforme [Unknown]
  - Weight increased [Unknown]
  - Influenza [Recovered/Resolved]
  - Pyrexia [Recovered/Resolved]
  - Inappropriate schedule of product administration [Unknown]
